FAERS Safety Report 23904571 (Version 2)
Quarter: 2024Q2

REPORT INFORMATION
  Report Type: Spontaneous
  Country: PT (occurrence: PT)
  Receive Date: 20240527
  Receipt Date: 20240531
  Transmission Date: 20240715
  Serious: Yes (Other)
  Sender: FDA-Public Use
  Company Number: None

PATIENT

DRUGS (5)
  1. FLUTICASONE FUROATE [Suspect]
     Active Substance: FLUTICASONE FUROATE
     Indication: Rhinitis allergic
     Dosage: 55 ?G, QD (1 SPRAY IN EACH NOSTRIL ONCE A DAY)
     Route: 045
  2. MOMETASONE FUROATE [Suspect]
     Active Substance: MOMETASONE FUROATE
     Indication: Rhinitis allergic
     Dosage: 100 MG, QD
     Route: 045
  3. RINIALER [Concomitant]
     Indication: Product used for unknown indication
     Dosage: UNK
     Route: 065
  4. BILASTINE [Concomitant]
     Active Substance: BILASTINE
     Indication: Product used for unknown indication
     Dosage: UNK
     Route: 065
  5. DESOGESTREL [Concomitant]
     Active Substance: DESOGESTREL
     Indication: Product used for unknown indication
     Dosage: UNK
     Route: 065

REACTIONS (1)
  - Sneezing [Recovered/Resolved]
